FAERS Safety Report 14699569 (Version 1)
Quarter: 2018Q1

REPORT INFORMATION
  Report Type: Spontaneous
  Country: CA (occurrence: CA)
  Receive Date: 20180330
  Receipt Date: 20180330
  Transmission Date: 20180509
  Serious: Yes (Other)
  Sender: FDA-Public Use
  Company Number: CA-MYLANLABS-2018M1018751

PATIENT
  Age: 9 Year
  Sex: Female

DRUGS (1)
  1. EPINEPHRINE. [Suspect]
     Active Substance: EPINEPHRINE
     Indication: PRODUCT USED FOR UNKNOWN INDICATION
     Dosage: 0.3 MG, UNK
     Route: 030

REACTIONS (6)
  - Injection site pain [Recovered/Resolved]
  - Injection site coldness [Recovered/Resolved]
  - Injection site ischaemia [Recovered/Resolved]
  - Injection site paraesthesia [Recovered/Resolved]
  - Injection site pallor [Recovered/Resolved]
  - Accidental exposure to product by child [Recovered/Resolved]
